FAERS Safety Report 19822271 (Version 4)
Quarter: 2022Q1

REPORT INFORMATION
  Report Type: Spontaneous
  Country: US (occurrence: US)
  Receive Date: 20210913
  Receipt Date: 20220314
  Transmission Date: 20220423
  Serious: No
  Sender: FDA-Public Use
  Company Number: US-GLOBAL BLOOD THERAPEUTICS INC-US-GBT-21-02843

PATIENT
  Age: 51 Year
  Sex: Female

DRUGS (8)
  1. OXBRYTA [Suspect]
     Active Substance: VOXELOTOR
     Indication: Sickle cell disease
     Route: 048
     Dates: start: 20210302
  2. OXBRYTA [Suspect]
     Active Substance: VOXELOTOR
     Route: 048
     Dates: start: 202108
  3. OXBRYTA [Suspect]
     Active Substance: VOXELOTOR
     Route: 048
     Dates: start: 20211029
  4. ALLOPURINOL [Concomitant]
     Active Substance: ALLOPURINOL
     Indication: Gout
  5. FOLIC ACID [Concomitant]
     Active Substance: FOLIC ACID
     Indication: Product used for unknown indication
  6. VITAMIN B12 [Concomitant]
     Active Substance: CYANOCOBALAMIN
     Indication: Product used for unknown indication
     Dosage: NOT PROVIDED
  7. LOSARTAN [Concomitant]
     Active Substance: LOSARTAN
     Indication: Hypertension
     Dosage: NOT PROVIDED
  8. AMLODIPINE [Concomitant]
     Active Substance: AMLODIPINE BESYLATE
     Indication: Hypertension

REACTIONS (12)
  - Pruritus [Unknown]
  - Rash pustular [Unknown]
  - Pruritus [Unknown]
  - Back pain [Unknown]
  - Chest pain [Unknown]
  - Scar [Not Recovered/Not Resolved]
  - Skin hyperpigmentation [Not Recovered/Not Resolved]
  - Scab [Not Recovered/Not Resolved]
  - Skin exfoliation [Not Recovered/Not Resolved]
  - Rash [Unknown]
  - Off label use [Unknown]
  - Product dose omission issue [Unknown]

NARRATIVE: CASE EVENT DATE: 20211001
